FAERS Safety Report 5903307-1 (Version None)
Quarter: 2008Q3

REPORT INFORMATION
  Report Type: 
  Country: None (occurrence: None)
  Receive Date: 20080930
  Receipt Date: 20080926
  Transmission Date: 20090109
  Serious: Yes (Hospitalization)
  Sender: FDA-Public Use
  Company Number: B0536814A

PATIENT
  Age: 41 Year
  Sex: Female
  Weight: 89 kg

DRUGS (2)
  1. LAPATINIB [Suspect]
     Indication: BREAST CANCER
     Dosage: 1500MG PER DAY
     Route: 048
     Dates: start: 20080418
  2. TRASTUZUMAB [Suspect]
     Indication: BREAST CANCER
     Dosage: 2MGK WEEKLY
     Route: 042
     Dates: start: 20071214

REACTIONS (8)
  - CELLULITIS [None]
  - ECZEMA [None]
  - ERYSIPELAS [None]
  - ERYTHEMA [None]
  - INFLAMMATION [None]
  - PYREXIA [None]
  - SKIN TOXICITY [None]
  - SWELLING [None]
